FAERS Safety Report 9578949 (Version 1)
Quarter: 2013Q4

REPORT INFORMATION
  Report Type: Spontaneous
  Country: US (occurrence: US)
  Receive Date: 20131001
  Receipt Date: 20131001
  Transmission Date: 20140711
  Serious: No
  Sender: FDA-Public Use
  Company Number: US-AMGEN-USASP2013015549

PATIENT
  Age: 56 Year
  Sex: Female
  Weight: 65.31 kg

DRUGS (6)
  1. ENBREL [Suspect]
     Indication: PRODUCT USED FOR UNKNOWN INDICATION
     Dosage: 50 MG, QWK
     Route: 058
  2. PREDNISONE [Concomitant]
     Dosage: 1 MG, UNK
  3. TUMS                               /07357001/ [Concomitant]
     Dosage: 500 MG, UNK CHW
  4. ADVIL                              /00044201/ [Concomitant]
     Dosage: 200 MG, UNK
  5. VITAMIN D                          /00107901/ [Concomitant]
     Dosage: 400 UNIT, UNK
  6. UNISOM                             /00000402/ [Concomitant]
     Dosage: 25 MG, UNK

REACTIONS (1)
  - Drug ineffective [Unknown]
